FAERS Safety Report 16162956 (Version 1)
Quarter: 2019Q2

REPORT INFORMATION
  Report Type: Spontaneous
  Country: US (occurrence: US)
  Receive Date: 20190404
  Receipt Date: 20190404
  Transmission Date: 20190711
  Serious: Yes (Other)
  Sender: FDA-Public Use
  Company Number: None

PATIENT
  Age: 52 Year
  Sex: Female
  Weight: 154.22 kg

DRUGS (7)
  1. SPIRONOLACTONE. [Concomitant]
     Active Substance: SPIRONOLACTONE
  2. VITAMIN D [Concomitant]
     Active Substance: VITAMIN D NOS
  3. FUROSEMIDE. [Concomitant]
     Active Substance: FUROSEMIDE
  4. FISH OIL [Concomitant]
     Active Substance: FISH OIL
  5. MIRENA [Suspect]
     Active Substance: LEVONORGESTREL
  6. METFORMIN [Concomitant]
     Active Substance: METFORMIN HYDROCHLORIDE
  7. AMLODIPINE [Concomitant]
     Active Substance: AMLODIPINE BESYLATE

REACTIONS (1)
  - Thrombophlebitis superficial [None]

NARRATIVE: CASE EVENT DATE: 20190307
